FAERS Safety Report 9347705 (Version 1)
Quarter: 2013Q2

REPORT INFORMATION
  Report Type: Spontaneous
  Country: US (occurrence: US)
  Receive Date: 20130614
  Receipt Date: 20130614
  Transmission Date: 20140414
  Serious: No
  Sender: FDA-Public Use
  Company Number: US-PFIZER INC-2013175586

PATIENT
  Sex: Male

DRUGS (1)
  1. ADVIL ALLERGY AND CONGESTION RELIEF [Suspect]
     Indication: HYPERSENSITIVITY
     Dosage: UNK

REACTIONS (1)
  - Somnolence [Unknown]
